FAERS Safety Report 5266584-9 (Version None)
Quarter: 2007Q1

REPORT INFORMATION
  Report Type: 
  Country: None (occurrence: None)
  Receive Date: 20070315
  Receipt Date: 20070305
  Transmission Date: 20070707
  Serious: Yes (Hospitalization, Other)
  Sender: FDA-Public Use
  Company Number: JP-PFIZER INC-2006155340

PATIENT
  Sex: Male
  Weight: 68.5 kg

DRUGS (20)
  1. VFEND [Suspect]
     Indication: BRONCHOPULMONARY ASPERGILLOSIS
     Route: 042
     Dates: start: 20060222, end: 20060226
  2. NAUZELIN [Concomitant]
     Indication: NAUSEA
     Route: 048
     Dates: start: 20051221, end: 20060303
  3. CODEINE PHOSPHATE [Concomitant]
     Indication: COUGH
     Route: 048
     Dates: start: 20051221, end: 20060301
  4. MAGNESIUM OXIDE [Concomitant]
     Indication: CONSTIPATION
     Route: 048
     Dates: start: 20051221, end: 20060301
  5. FAMOTIDINE [Concomitant]
     Indication: REFLUX OESOPHAGITIS
     Route: 048
     Dates: start: 20051221
  6. RINDERON [Concomitant]
     Indication: RADIATION PNEUMONITIS
     Route: 048
     Dates: start: 20051221
  7. RINDERON [Concomitant]
     Indication: ANOREXIA
  8. RINDERON [Concomitant]
     Indication: MALAISE
  9. STROCAIN [Concomitant]
     Indication: RADIATION OESOPHAGITIS
     Route: 048
     Dates: start: 20060204
  10. CALSED [Concomitant]
     Route: 042
     Dates: start: 20060123, end: 20060125
  11. CARBENIN [Concomitant]
     Indication: BACTERIAL INFECTION
     Route: 042
     Dates: start: 20060130, end: 20060206
  12. GRAN [Concomitant]
     Indication: LEUKOPENIA
     Route: 058
     Dates: start: 20060130, end: 20060211
  13. GRAN [Concomitant]
     Route: 042
  14. LAC B [Concomitant]
     Route: 048
     Dates: start: 20060130, end: 20060215
  15. FUNGIZONE [Concomitant]
     Route: 048
     Dates: start: 20060204, end: 20060213
  16. LACTULOSE [Concomitant]
     Route: 048
     Dates: start: 20060204, end: 20060213
  17. BENAMBAX [Concomitant]
     Dates: start: 20060206, end: 20060213
  18. PASIL [Concomitant]
     Indication: BACTERIAL INFECTION
     Route: 042
     Dates: start: 20060207, end: 20060214
  19. BAKTAR [Concomitant]
     Indication: PNEUMONIA
     Route: 048
     Dates: start: 20060207, end: 20060228
  20. PREDONINE [Concomitant]
     Indication: RADIATION PNEUMONITIS
     Route: 048
     Dates: start: 20060301, end: 20060316

REACTIONS (3)
  - HALLUCINATION [None]
  - HEPATIC FUNCTION ABNORMAL [None]
  - HYPOKALAEMIA [None]
